FAERS Safety Report 20199475 (Version 2)
Quarter: 2021Q4

REPORT INFORMATION
  Report Type: Report from Study
  Country: GB (occurrence: GB)
  Receive Date: 20211217
  Receipt Date: 20211222
  Transmission Date: 20220304
  Serious: Yes (Death, Hospitalization, Other)
  Sender: FDA-Public Use
  Company Number: GB-GILEAD-2021-0561712

PATIENT
  Age: 51 Year
  Sex: Female
  Weight: 124.7 kg

DRUGS (8)
  1. AVIPTADIL [Suspect]
     Active Substance: AVIPTADIL
     Indication: COVID-19
     Dosage: 10.4 ML
     Route: 042
     Dates: start: 20211129, end: 20211202
  2. PLACEBO [Suspect]
     Active Substance: UNSPECIFIED INGREDIENT
     Indication: COVID-19
     Dosage: 10.4 ML
     Route: 042
     Dates: start: 20211129, end: 20211202
  3. REMDESIVIR [Suspect]
     Active Substance: REMDESIVIR
     Indication: COVID-19
     Dosage: 10.4 ML
     Route: 042
     Dates: start: 20211129, end: 20211202
  4. DEXAMETHASONE [Concomitant]
     Active Substance: DEXAMETHASONE
     Dosage: 6 MG, QD
  5. LOVENOX [Concomitant]
     Active Substance: ENOXAPARIN SODIUM
     Dosage: UNK, BID
  6. BARICITINIB [Concomitant]
     Active Substance: BARICITINIB
  7. ONDANSETRON [Concomitant]
     Active Substance: ONDANSETRON
     Indication: Nausea
     Dosage: UNK
  8. PROCHLORPERAZINE [Concomitant]
     Active Substance: PROCHLORPERAZINE
     Indication: Nausea
     Dosage: UNK

REACTIONS (1)
  - Acute abdomen [Fatal]

NARRATIVE: CASE EVENT DATE: 20211201
